FAERS Safety Report 8325040-1 (Version None)
Quarter: 2012Q2

REPORT INFORMATION
  Report Type: 
  Country: None (occurrence: None)
  Receive Date: 20120501
  Receipt Date: 20120417
  Transmission Date: 20120825
  Serious: Yes (Life-Threatening, Hospitalization)
  Sender: FDA-Public Use
  Company Number: US-MYLANLABS-2012S1008285

PATIENT
  Age: 51 Year
  Sex: Female

DRUGS (9)
  1. PHENOBARBITAL TAB [Concomitant]
     Route: 065
  2. DIGOXIN [Concomitant]
     Route: 065
  3. WARFARIN SODIUM [Concomitant]
     Route: 065
  4. BACLOFEN [Suspect]
     Route: 065
  5. HYDROXYZINE [Concomitant]
     Route: 065
  6. PAROXETINE [Concomitant]
     Route: 065
  7. BACLOFEN [Suspect]
     Indication: OVERDOSE
     Route: 048
  8. CLORAZEPATE DIPOTASSIUM [Concomitant]
     Route: 065
  9. PHENYTOIN [Concomitant]
     Route: 065

REACTIONS (5)
  - COMA [None]
  - TOXICITY TO VARIOUS AGENTS [None]
  - HYPOTENSION [None]
  - SUICIDE ATTEMPT [None]
  - OVERDOSE [None]
